FAERS Safety Report 21820292 (Version 1)
Quarter: 2023Q1

REPORT INFORMATION
  Report Type: Spontaneous
  Country: FR (occurrence: FR)
  Receive Date: 20230105
  Receipt Date: 20230105
  Transmission Date: 20230418
  Serious: Yes (Hospitalization)
  Sender: FDA-Public Use
  Company Number: FR-ROCHE-3245941

PATIENT
  Age: 56 Year
  Sex: Male
  Weight: 97 kg

DRUGS (8)
  1. PANTOPRAZOLE [Suspect]
     Active Substance: PANTOPRAZOLE
     Indication: Product used for unknown indication
     Dosage: 40 MILLIGRAM
     Route: 048
  2. VALGANCICLOVIR [Suspect]
     Active Substance: VALGANCICLOVIR
     Indication: Antiviral prophylaxis
     Dosage: 450 MILLIGRAM(X 900 MILLIGRAM IN)
     Route: 048
  3. LEVOFLOXACIN [Suspect]
     Active Substance: LEVOFLOXACIN
     Indication: Liver abscess
     Dosage: 1000 MILLIGRAM(500 MG TWO PER DAY)
     Route: 048
     Dates: start: 20221011, end: 20221012
  4. CELLCEPT [Suspect]
     Active Substance: MYCOPHENOLATE MOFETIL
     Indication: Liver transplant
     Dosage: 500 MILLIGRAM(X 1000MG IN)
     Route: 048
     Dates: start: 202205
  5. ENVARSUS XR [Suspect]
     Active Substance: TACROLIMUS
     Indication: Liver transplant
     Dosage: 2.75 MILLIGRAM IN 1 DAY
     Route: 048
     Dates: start: 202205
  6. RIMIFON [Suspect]
     Active Substance: ISONIAZID
     Indication: Latent tuberculosis
     Dosage: 150 MILLIGRAM(X 300MG IN)
     Route: 048
  7. SIVEXTRO [Concomitant]
     Active Substance: TEDIZOLID PHOSPHATE
     Indication: Liver abscess
     Dosage: 200 MILLIGRAM, ONCE A DAY
     Route: 065
  8. KARDEGIC [Concomitant]
     Active Substance: ASPIRIN DL-LYSINE
     Indication: Product used for unknown indication
     Dosage: 75 MILLIGRAM, ONCE A DAY
     Route: 065

REACTIONS (2)
  - Hypomagnesaemia [Recovered/Resolved]
  - Myoclonus [Recovered/Resolved]

NARRATIVE: CASE EVENT DATE: 20220930
